FAERS Safety Report 6387841-9 (Version None)
Quarter: 2009Q4

REPORT INFORMATION
  Report Type: 
  Country: None (occurrence: None)
  Receive Date: 20091005
  Receipt Date: 20090924
  Transmission Date: 20100525
  Serious: Yes (Other)
  Sender: FDA-Public Use
  Company Number: JP-PFIZER INC-2009274801

PATIENT
  Age: 73 Year

DRUGS (6)
  1. METHYLPREDNISOLONE AND METHYLPREDNISOLONE ACETATE AND METHYLPREDNISOLO [Suspect]
     Indication: SCLERODERMA
  2. METHYLPREDNISOLONE AND METHYLPREDNISOLONE ACETATE AND METHYLPREDNISOLO [Suspect]
     Indication: GLOMERULONEPHRITIS
  3. PREDNISOLONE AND PREDNISOLONE STEAGLATE [Suspect]
     Indication: SCLERODERMA
     Dosage: 40 MG, PER DAY
  4. PREDNISOLONE AND PREDNISOLONE STEAGLATE [Suspect]
     Indication: GLOMERULONEPHRITIS
  5. ENDOXAN [Suspect]
     Indication: SCLERODERMA
     Dosage: 500 MG, FOR 1 WEEK FOLLOWED BY 3 WEEKS OF INTERVAL
  6. ENDOXAN [Suspect]
     Indication: GLOMERULONEPHRITIS

REACTIONS (2)
  - DISSEMINATED TUBERCULOSIS [None]
  - PULMONARY TUBERCULOSIS [None]
